FAERS Safety Report 11908820 (Version 14)
Quarter: 2018Q3

REPORT INFORMATION
  Report Type: Report from Study
  Country: US (occurrence: US)
  Receive Date: 20160111
  Receipt Date: 20180727
  Transmission Date: 20181010
  Serious: Yes (Death, Life-Threatening, Hospitalization, Other)
  Sender: FDA-Public Use
  Company Number: US-ACTELION-A-NJ2016-129581

PATIENT
  Age: 59 Year
  Sex: Female
  Weight: 87.44 kg

DRUGS (38)
  1. ASPIRIN. [Concomitant]
     Active Substance: ASPIRIN
     Dosage: 325 MG, QD
  2. SINGULAIR [Concomitant]
     Active Substance: MONTELUKAST SODIUM
  3. LIPITOR [Concomitant]
     Active Substance: ATORVASTATIN CALCIUM
  4. IPRATEC [Concomitant]
  5. SYMBICORT [Concomitant]
     Active Substance: BUDESONIDE\FORMOTEROL FUMARATE DIHYDRATE
     Dosage: 160 MCG ? 4.5 MCG, BID
     Route: 055
  6. TORSEMIDE. [Concomitant]
     Active Substance: TORSEMIDE
  7. DILTIAZEM. [Concomitant]
     Active Substance: DILTIAZEM
     Dosage: UNK
     Dates: start: 20170608
  8. ZOFRAN [Concomitant]
     Active Substance: ONDANSETRON HYDROCHLORIDE
     Dosage: UNK
     Dates: start: 20170608
  9. UPTRAVI [Suspect]
     Active Substance: SELEXIPAG
     Dosage: 200 MCG, UNK
     Route: 048
     Dates: start: 20160315
  10. ATORVASTATIN [Concomitant]
     Active Substance: ATORVASTATIN
     Dosage: 80 MG, QPM
  11. CARVEDILOL. [Concomitant]
     Active Substance: CARVEDILOL
     Dosage: 12.5 MG, BID
  12. OMEPRAZOLE. [Concomitant]
     Active Substance: OMEPRAZOLE
     Dosage: 40 MG, ER, QD
  13. PROAIR HFA [Concomitant]
     Active Substance: ALBUTEROL SULFATE
     Dosage: 90 MCG, QID
  14. BUMETANIDE. [Concomitant]
     Active Substance: BUMETANIDE
  15. PROVENTIL [Concomitant]
     Active Substance: ALBUTEROL
  16. OPSUMIT [Suspect]
     Active Substance: MACITENTAN
     Indication: PULMONARY ARTERIAL HYPERTENSION
     Dosage: 10 MG, QD
     Route: 048
     Dates: start: 20151104, end: 20170707
  17. UPTRAVI [Suspect]
     Active Substance: SELEXIPAG
     Indication: PULMONARY ARTERIAL HYPERTENSION
     Dosage: 800 MCG, BID
     Route: 048
     Dates: start: 20160317, end: 20170608
  18. RIOCIGUAT. [Concomitant]
     Active Substance: RIOCIGUAT
     Dosage: 2.0 MG, TID
     Dates: start: 201512
  19. HYDROCHLOROTHIAZIDE. [Concomitant]
     Active Substance: HYDROCHLOROTHIAZIDE
     Dosage: 25 MG/160 MG
     Route: 048
  20. MONTELUKAST [Concomitant]
     Active Substance: MONTELUKAST SODIUM
     Dosage: 10 MG, QPM
  21. OXYGEN. [Concomitant]
     Active Substance: OXYGEN
  22. POTASSIUM CHLORIDE. [Concomitant]
     Active Substance: POTASSIUM CHLORIDE
  23. HUMALOG [Concomitant]
     Active Substance: INSULIN LISPRO
  24. UPTRAVI [Suspect]
     Active Substance: SELEXIPAG
     Dosage: 600 MCG, BID
     Route: 048
  25. GLUCOPHAGE [Concomitant]
     Active Substance: METFORMIN HYDROCHLORIDE
  26. VITAMIN B12 [Concomitant]
     Active Substance: CYANOCOBALAMIN
  27. INCRUSE ELLIPTA [Concomitant]
     Active Substance: UMECLIDINIUM BROMIDE
  28. LANTUS [Concomitant]
     Active Substance: INSULIN GLARGINE
     Dosage: 100 U/ML, 25 U
     Route: 058
  29. ADEMPAS [Concomitant]
     Active Substance: RIOCIGUAT
  30. MAGNESIUM OXIDE. [Concomitant]
     Active Substance: MAGNESIUM OXIDE
  31. HYDROCHLOROTHIAZIDE W/LOSARTAN [Concomitant]
     Active Substance: HYDROCHLOROTHIAZIDE\LOSARTAN
  32. LANTUS [Concomitant]
     Active Substance: INSULIN GLARGINE
     Dosage: 100 U/ML, 40 U, AT BEDTIME
     Route: 058
  33. FLUTICASONE. [Concomitant]
     Active Substance: FLUTICASONE
     Dosage: 50 MCG, BID
     Route: 055
  34. SPIRIVA [Concomitant]
     Active Substance: TIOTROPIUM BROMIDE MONOHYDRATE
     Dosage: 18 MCG, QID
     Route: 055
  35. OXYCODONE ACTAVIS [Concomitant]
     Active Substance: OXYCODONE HYDROCHLORIDE
  36. METOLAZONE. [Concomitant]
     Active Substance: METOLAZONE
  37. METFORMIN [Concomitant]
     Active Substance: METFORMIN HYDROCHLORIDE
     Indication: ESSENTIAL HYPERTENSION
  38. AMBIEN [Concomitant]
     Active Substance: ZOLPIDEM TARTRATE

REACTIONS (43)
  - Oedema [Recovered/Resolved]
  - Sputum purulent [Not Recovered/Not Resolved]
  - Blood creatinine abnormal [Recovered/Resolved]
  - Pulseless electrical activity [Unknown]
  - Tachycardia [Recovering/Resolving]
  - Palpitations [Not Recovered/Not Resolved]
  - Feeling hot [Not Recovered/Not Resolved]
  - Wheezing [Recovered/Resolved]
  - Sputum discoloured [Not Recovered/Not Resolved]
  - Vitamin B12 deficiency [Not Recovered/Not Resolved]
  - Dyspnoea [Not Recovered/Not Resolved]
  - Upper respiratory tract infection [Not Recovered/Not Resolved]
  - Glomerular filtration rate decreased [Recovered/Resolved]
  - Hypervolaemia [Unknown]
  - Haemoptysis [Not Recovered/Not Resolved]
  - Respiratory failure [Fatal]
  - Crepitations [Recovered/Resolved]
  - Cough [Recovered/Resolved]
  - Fatigue [Recovering/Resolving]
  - Pneumonia [Recovered/Resolved]
  - Bronchitis [Unknown]
  - Transfusion [Unknown]
  - Hypoxia [Recovered/Resolved]
  - Productive cough [Not Recovered/Not Resolved]
  - Dehydration [Unknown]
  - Syncope [Not Recovered/Not Resolved]
  - Vomiting [Not Recovered/Not Resolved]
  - Diarrhoea [Not Recovered/Not Resolved]
  - Muscular weakness [Not Recovered/Not Resolved]
  - Fluid overload [Recovered/Resolved]
  - Respiratory arrest [Unknown]
  - Hypotension [Unknown]
  - Chronic obstructive pulmonary disease [Recovering/Resolving]
  - Erythema [Not Recovered/Not Resolved]
  - Pulmonary oedema [Recovered/Resolved]
  - Respiratory acidosis [Recovered/Resolved]
  - Acute kidney injury [Recovered/Resolved]
  - Deep vein thrombosis [Unknown]
  - Renal failure [Unknown]
  - Pyrexia [Recovering/Resolving]
  - Nausea [Not Recovered/Not Resolved]
  - Pneumonia fungal [Recovered/Resolved]
  - Cellulitis [Not Recovered/Not Resolved]

NARRATIVE: CASE EVENT DATE: 20151201
